FAERS Safety Report 18252567 (Version 1)
Quarter: 2020Q3

REPORT INFORMATION
  Report Type: Spontaneous
  Country: US (occurrence: US)
  Receive Date: 20200910
  Receipt Date: 20200910
  Transmission Date: 20201103
  Serious: No
  Sender: FDA-Public Use
  Company Number: None

PATIENT
  Age: 44 Year
  Sex: Female
  Weight: 90 kg

DRUGS (1)
  1. MONTELUKAST [Suspect]
     Active Substance: MONTELUKAST SODIUM
     Indication: MULTIPLE ALLERGIES
     Route: 048

REACTIONS (9)
  - Agitation [None]
  - Emotional disorder [None]
  - Headache [None]
  - Fatigue [None]
  - Anxiety [None]
  - Depression [None]
  - Asthenia [None]
  - Symptom recurrence [None]
  - Crying [None]
